FAERS Safety Report 9465598 (Version 2)
Quarter: 2014Q3

REPORT INFORMATION
  Report Type: Spontaneous
  Country: DK (occurrence: DK)
  Receive Date: 20130820
  Receipt Date: 20140930
  Transmission Date: 20150326
  Serious: Yes (Hospitalization)
  Sender: FDA-Public Use
  Company Number: DK-NOVOPROD-384772

PATIENT
  Age: 16 Year
  Sex: Female
  Weight: 71 kg

DRUGS (2)
  1. ESTRADIOL. [Suspect]
     Active Substance: ESTRADIOL
     Indication: GROWTH RETARDATION
     Dosage: 2 MG, QD (ONE TABLET PER DAY. STRENGTH: 2MG)
     Route: 048
     Dates: start: 20130131, end: 20130311
  2. TRISEKVENS [Suspect]
     Active Substance: ETHINYL ESTRADIOL\NORETHINDRONE
     Indication: GROWTH RETARDATION
     Dosage: 1 TAB, QD (STRENGTH VARYING OVER CYCLES)
     Route: 048
     Dates: start: 20130131, end: 20130311

REACTIONS (5)
  - Sensory disturbance [Not Recovered/Not Resolved]
  - Myelitis [Recovering/Resolving]
  - Sensory loss [Recovering/Resolving]
  - Demyelination [Unknown]
  - Hypoaesthesia [Recovered/Resolved]

NARRATIVE: CASE EVENT DATE: 201302
